FAERS Safety Report 4364018-X (Version None)
Quarter: 2004Q2

REPORT INFORMATION
  Report Type: 
  Country: None (occurrence: None)
  Receive Date: 20040513
  Receipt Date: 20040430
  Transmission Date: 20050107
  Serious: Yes (Other)
  Sender: FDA-Public Use
  Company Number: 200410314BCA

PATIENT
  Age: 49 Year
  Sex: Male

DRUGS (9)
  1. PLASBUMIN-25 [Suspect]
     Indication: BLOOD PRODUCT TRANSFUSION
     Dosage: 200 ML, TOTAL DAILY, INTRAVENOUS
     Route: 042
  2. RED BLOOD CELLS [Suspect]
     Dosage: 200 ML, TOTAL DAILY, INTRAVENOUS
     Route: 042
  3. RED BLOOD CELLS [Suspect]
     Dosage: INTRAVENOUS
     Route: 042
     Dates: start: 19900813
  4. RED BLOOD CELLS [Suspect]
     Dates: start: 19900813
  5. RED BLOOD CELLS [Suspect]
     Dates: start: 19850501
  6. RED BLOOD CELLS [Suspect]
     Dates: start: 19850401
  7. RED BLOOD CELLS [Suspect]
     Dates: start: 19850401
  8. RED BLOOD CELLS [Suspect]
     Dates: start: 19850101
  9. RED BLOOD CELLS [Suspect]
     Dates: start: 19850101

REACTIONS (1)
  - HEPATITIS C POSITIVE [None]
